FAERS Safety Report 24682347 (Version 3)
Quarter: 2025Q4

REPORT INFORMATION
  Report Type: Spontaneous
  Country: US (occurrence: US)
  Receive Date: 20241130
  Receipt Date: 20251006
  Transmission Date: 20260117
  Serious: Yes (Other)
  Sender: TEVA
  Company Number: US-TEVA-VS-3268193

PATIENT
  Age: 68 Year
  Sex: Female

DRUGS (3)
  1. AUSTEDO [Suspect]
     Active Substance: DEUTETRABENAZINE
     Indication: Product used for unknown indication
     Dosage: ONE AUSTEDO 12 MG TABLET BY MOUTH IN THE MORNING AND AT BEDTIME.
     Route: 048
  2. AUSTEDO [Suspect]
     Active Substance: DEUTETRABENAZINE
     Indication: Product used for unknown indication
     Route: 048
  3. AUSTEDO [Suspect]
     Active Substance: DEUTETRABENAZINE
     Indication: Product used for unknown indication
     Dosage: 1 TABLET BY MOUTH TWICE DAILY FOR 14 DAYS
     Route: 048

REACTIONS (7)
  - Dyskinesia [Unknown]
  - Product dose omission issue [Unknown]
  - Inappropriate schedule of product administration [Unknown]
  - Product use issue [Unknown]
  - Drug titration error [Unknown]
  - Drug titration error [Unknown]
  - Off label use [Unknown]
